FAERS Safety Report 7275072-X (Version None)
Quarter: 2011Q1

REPORT INFORMATION
  Report Type: 
  Country: None (occurrence: None)
  Receive Date: 20110131
  Receipt Date: 20110119
  Transmission Date: 20110831
  Serious: Yes (Hospitalization)
  Sender: FDA-Public Use
  Company Number: WAES 1101USA01476

PATIENT
  Age: 79 Year
  Sex: Male

DRUGS (2)
  1. GLIMEPIRIDE [Concomitant]
  2. JANUVIA [Suspect]
     Indication: TYPE 2 DIABETES MELLITUS
     Dosage: 50 MG/DAILY
     Route: 048
     Dates: start: 20100712, end: 20100820

REACTIONS (1)
  - CEREBRAL INFARCTION [None]
